FAERS Safety Report 23470029 (Version 2)
Quarter: 2024Q1

REPORT INFORMATION
  Report Type: Spontaneous
  Country: US (occurrence: US)
  Receive Date: 20240202
  Receipt Date: 20240215
  Transmission Date: 20240409
  Serious: No
  Sender: FDA-Public Use
  Company Number: US-BRISTOL-MYERS SQUIBB COMPANY-2024-016787

PATIENT
  Age: 65 Year
  Sex: Male

DRUGS (2)
  1. POMALYST [Suspect]
     Active Substance: POMALIDOMIDE
     Indication: Plasma cell myeloma
     Route: 048
     Dates: start: 20240119
  2. XPOVIO [Suspect]
     Active Substance: SELINEXOR
     Indication: Product used for unknown indication

REACTIONS (12)
  - Decreased appetite [Unknown]
  - Weight decreased [Unknown]
  - Dysgeusia [Unknown]
  - Nausea [Unknown]
  - Dizziness [Unknown]
  - Insomnia [Unknown]
  - Feeling abnormal [Unknown]
  - Nocturia [Unknown]
  - Hypotension [Unknown]
  - Ageusia [Unknown]
  - Dyspnoea [Unknown]
  - Hypoaesthesia oral [Unknown]
